FAERS Safety Report 10989590 (Version 6)
Quarter: 2015Q4

REPORT INFORMATION
  Report Type: Spontaneous
  Country: GB (occurrence: GB)
  Receive Date: 20150406
  Receipt Date: 20151120
  Transmission Date: 20160304
  Serious: Yes (Other)
  Sender: FDA-Public Use
  Company Number: GB-BIOGENIDEC-2015BI001862

PATIENT
  Age: 37 Year
  Sex: Male

DRUGS (1)
  1. TYSABRI [Suspect]
     Active Substance: NATALIZUMAB
     Indication: RELAPSING-REMITTING MULTIPLE SCLEROSIS
     Route: 042
     Dates: start: 201006, end: 201412

REACTIONS (6)
  - Immune reconstitution inflammatory syndrome [Recovered/Resolved]
  - Fatigue [Unknown]
  - Multiple sclerosis relapse [Unknown]
  - Progressive multifocal leukoencephalopathy [Recovered/Resolved]
  - Loss of libido [Unknown]
  - Depression [Unknown]

NARRATIVE: CASE EVENT DATE: 201406
